FAERS Safety Report 15621523 (Version 2)
Quarter: 2019Q1

REPORT INFORMATION
  Report Type: Spontaneous
  Country: SE (occurrence: SE)
  Receive Date: 20181115
  Receipt Date: 20190104
  Transmission Date: 20190417
  Serious: Yes (Death, Hospitalization, Other)
  Sender: FDA-Public Use
  Company Number: SE-PFIZER INC-2018466471

PATIENT
  Age: 49 Year
  Sex: Male

DRUGS (2)
  1. BACTRIM [Concomitant]
     Active Substance: SULFAMETHOXAZOLE\TRIMETHOPRIM
     Dosage: UNK UNK, 1X/DAY
     Dates: start: 20181025, end: 20181104
  2. BESPONSA [Suspect]
     Active Substance: INOTUZUMAB OZOGAMICIN
     Indication: B PRECURSOR TYPE ACUTE LEUKAEMIA
     Dosage: 1MG/50ML. 0.8 RESP 0.5 MG/M2, CYCLE 1, GOT 2 DOSES
     Route: 042
     Dates: start: 20181023, end: 20181029

REACTIONS (3)
  - Venoocclusive liver disease [Fatal]
  - Multiple organ dysfunction syndrome [Fatal]
  - Cholecystitis [Unknown]

NARRATIVE: CASE EVENT DATE: 20181029
